FAERS Safety Report 18546754 (Version 3)
Quarter: 2020Q4

REPORT INFORMATION
  Report Type: Report from Study
  Country: US (occurrence: US)
  Receive Date: 20201125
  Receipt Date: 20201228
  Transmission Date: 20210114
  Serious: Yes (Hospitalization, Other)
  Sender: FDA-Public Use
  Company Number: US-MALLINCKRODT-T202005540

PATIENT
  Age: 95 Year
  Sex: Female
  Weight: 104 kg

DRUGS (29)
  1. UVADEX [Suspect]
     Active Substance: METHOXSALEN
     Dosage: ECP 6, EXTRACORPOREAL
     Route: 050
     Dates: start: 20200721, end: 20200721
  2. CLARITIN [Concomitant]
     Active Substance: LORATADINE
     Indication: PRODUCT USED FOR UNKNOWN INDICATION
     Dosage: UNK
     Route: 065
  3. ASA [Concomitant]
     Active Substance: ASPIRIN
     Indication: PRODUCT USED FOR UNKNOWN INDICATION
     Dosage: 81 MILLIGRAM
     Route: 065
  4. UVADEX [Suspect]
     Active Substance: METHOXSALEN
     Dosage: ECP 5, EXTRACORPOREAL
     Route: 050
     Dates: start: 20200720, end: 20200720
  5. UVADEX [Suspect]
     Active Substance: METHOXSALEN
     Dosage: 2.5 MILLILITER, EXTRACORPOREAL
     Route: 050
     Dates: start: 20200728, end: 20200728
  6. TACROLIMUS. [Concomitant]
     Active Substance: TACROLIMUS
     Indication: PRODUCT USED FOR UNKNOWN INDICATION
     Dosage: 1.5 MG QAM, 1 MG Q PM
     Route: 065
  7. UVADEX [Suspect]
     Active Substance: METHOXSALEN
     Dosage: ECP 2, EXTRACORPOREAL
     Route: 050
     Dates: start: 20200708, end: 20200708
  8. UVADEX [Suspect]
     Active Substance: METHOXSALEN
     Dosage: ECP 4, EXTRACORPOREAL
     Route: 050
     Dates: start: 20200717, end: 20200717
  9. ACLOVIR [Concomitant]
     Indication: PRODUCT USED FOR UNKNOWN INDICATION
     Dosage: 200 MILLIGRAM, BID
     Route: 065
  10. MYCOPHENOLATE [Concomitant]
     Active Substance: MYCOPHENOLIC ACID
     Indication: PRODUCT USED FOR UNKNOWN INDICATION
     Dosage: 500 MILLIGRAM, BID
     Route: 065
  11. UVADEX [Suspect]
     Active Substance: METHOXSALEN
     Dosage: ECP 3, EXTRACORPOREAL
     Route: 050
     Dates: start: 20200716, end: 20200716
  12. AZITHROMYCIN ANHYDROUS. [Concomitant]
     Active Substance: AZITHROMYCIN ANHYDROUS
     Indication: PRODUCT USED FOR UNKNOWN INDICATION
     Dosage: 500 MILLIGRAM, MON, WED,FRI
     Route: 065
  13. COLYMYCIN [Concomitant]
     Indication: PRODUCT USED FOR UNKNOWN INDICATION
     Dosage: UNK
     Route: 065
  14. MAGNESIUM OXIDE. [Concomitant]
     Active Substance: MAGNESIUM OXIDE
     Indication: PRODUCT USED FOR UNKNOWN INDICATION
     Dosage: UNK
     Route: 065
  15. PREDNISONE. [Concomitant]
     Active Substance: PREDNISONE
     Indication: PRODUCT USED FOR UNKNOWN INDICATION
     Dosage: 5 MILLIGRAM, QD
     Route: 048
  16. HEPARIN [Concomitant]
     Active Substance: HEPARIN SODIUM
     Indication: ANTICOAGULANT THERAPY
     Dosage: ANTICOAGULANT
     Route: 065
     Dates: start: 20200728, end: 20200728
  17. ALBUTEROL. [Concomitant]
     Active Substance: ALBUTEROL
     Indication: PRODUCT USED FOR UNKNOWN INDICATION
     Dosage: NEBULIZER
     Route: 065
  18. VITAMIN D3 [Concomitant]
     Active Substance: CHOLECALCIFEROL
     Indication: PRODUCT USED FOR UNKNOWN INDICATION
     Dosage: 50 MICROGRAM, QD
     Route: 065
  19. PRAVASTATIN. [Concomitant]
     Active Substance: PRAVASTATIN
     Indication: PRODUCT USED FOR UNKNOWN INDICATION
     Dosage: UNK
     Route: 065
  20. UVADEX [Suspect]
     Active Substance: METHOXSALEN
     Indication: BRONCHIOLITIS OBLITERANS SYNDROME
     Dosage: 2.5 MILLILITER, ECP 1, EXTRACORPOREAL
     Route: 050
     Dates: start: 20200707, end: 20200707
  21. UVADEX [Suspect]
     Active Substance: METHOXSALEN
     Dosage: ECP 9, EXTRACORPOREAL
     Route: 050
     Dates: start: 20200826
  22. INSULIN [Concomitant]
     Active Substance: INSULIN NOS
     Indication: PRODUCT USED FOR UNKNOWN INDICATION
     Dosage: UNK
     Route: 065
  23. LOPRESSOR [Concomitant]
     Active Substance: METOPROLOL TARTRATE
     Indication: PRODUCT USED FOR UNKNOWN INDICATION
     Dosage: 50 MILLIGRAM, BID
     Route: 065
  24. UVADEX [Suspect]
     Active Substance: METHOXSALEN
     Dosage: ECP 7, EXTRACORPOREAL
     Route: 050
     Dates: start: 20200727, end: 20200727
  25. SINGULAIR [Concomitant]
     Active Substance: MONTELUKAST SODIUM
     Indication: PRODUCT USED FOR UNKNOWN INDICATION
     Dosage: UNK
     Route: 065
  26. BACTRIM [Concomitant]
     Active Substance: SULFAMETHOXAZOLE\TRIMETHOPRIM
     Indication: PRODUCT USED FOR UNKNOWN INDICATION
     Dosage: UNK
     Route: 065
  27. CALCIUM CARBONATE AND VITAMIN D3 [Concomitant]
     Active Substance: CALCIUM CARBONATE\CHOLECALCIFEROL
     Indication: PRODUCT USED FOR UNKNOWN INDICATION
     Dosage: /200 MG
     Route: 065
  28. HEPARIN [Concomitant]
     Active Substance: HEPARIN SODIUM
     Indication: PULMONARY EMBOLISM
     Dosage: DRIP
     Route: 065
     Dates: start: 20200803
  29. CEFTAZIDIME. [Concomitant]
     Active Substance: CEFTAZIDIME
     Indication: DYSPNOEA
     Dosage: UNK, INHALATION
     Route: 055
     Dates: start: 202007

REACTIONS (1)
  - Pulmonary embolism [Recovered/Resolved with Sequelae]

NARRATIVE: CASE EVENT DATE: 20200803
